FAERS Safety Report 5151101-4 (Version None)
Quarter: 2006Q4

REPORT INFORMATION
  Report Type: 
  Country: None (occurrence: None)
  Receive Date: 20061115
  Receipt Date: 20060105
  Transmission Date: 20070319
  Serious: Yes (Death, Life-Threatening, Hospitalization)
  Sender: FDA-Public Use
  Company Number: US-BAYER-200610114BWH

PATIENT
  Age: 78 Year
  Sex: Male
  Weight: 76 kg

DRUGS (15)
  1. SORAFENIB [Suspect]
     Indication: METASTATIC RENAL CELL CARCINOMA
     Dosage: TOTAL DAILY DOSE: 400 MG  UNIT DOSE: 200 MG
     Route: 048
     Dates: start: 20060109, end: 20060207
  2. SORAFENIB [Suspect]
     Dosage: TOTAL DAILY DOSE: 400 MG  UNIT DOSE: 200 MG
     Route: 048
     Dates: start: 20051216, end: 20060105
  3. COREG [Concomitant]
     Indication: HYPERTENSION
     Route: 048
     Dates: end: 20060105
  4. COREG [Concomitant]
     Dates: start: 20060101, end: 20060207
  5. PREDNISONE TAB [Concomitant]
     Indication: ASTHMA
     Route: 048
  6. PREDNISONE TAB [Concomitant]
     Dates: start: 20060101, end: 20060207
  7. LASIX [Concomitant]
     Indication: OEDEMA
     Route: 048
     Dates: end: 20060208
  8. OMNICEF [Concomitant]
     Indication: PNEUMONIA
     Route: 048
     Dates: start: 20060101, end: 20060207
  9. ASPIRIN [Concomitant]
     Indication: ANTICOAGULANT THERAPY
     Route: 048
     Dates: start: 20060101, end: 20060207
  10. FLOMAX [Concomitant]
     Indication: BENIGN PROSTATIC HYPERPLASIA
     Route: 048
     Dates: start: 20060101, end: 20060208
  11. GLUCOPHAGE [Concomitant]
     Indication: DIABETES MELLITUS
     Route: 048
     Dates: start: 20060101, end: 20060208
  12. GLIPIZIDE ERR [Concomitant]
     Indication: DIABETES MELLITUS
     Route: 048
     Dates: start: 20060101, end: 20060208
  13. TYLENOL W/ CODEINE NO. 3 [Concomitant]
     Indication: PAIN MANAGEMENT
     Dosage: AS USED: 300/30 MG
     Route: 048
     Dates: start: 20060101, end: 20060208
  14. PERIACTIN [Concomitant]
     Indication: RHINITIS SEASONAL
     Route: 048
     Dates: start: 20060101, end: 20060208
  15. AMBIEN [Concomitant]
     Indication: INSOMNIA
     Route: 048
     Dates: start: 20060101, end: 20060208

REACTIONS (9)
  - ATRIAL FIBRILLATION [None]
  - CARDIAC FAILURE CONGESTIVE [None]
  - DISEASE PROGRESSION [None]
  - ELECTROCARDIOGRAM T WAVE ABNORMAL [None]
  - PLEURAL EFFUSION [None]
  - PNEUMONIA [None]
  - PNEUMOTHORAX [None]
  - PULMONARY OEDEMA [None]
  - RESPIRATORY FAILURE [None]
